FAERS Safety Report 19666445 (Version 1)
Quarter: 2021Q3

REPORT INFORMATION
  Report Type: Spontaneous
  Country: NL (occurrence: NL)
  Receive Date: 20210806
  Receipt Date: 20210806
  Transmission Date: 20211014
  Serious: Yes (Other)
  Sender: FDA-Public Use
  Company Number: NL-TEVA-2021-NL-1939242

PATIENT
  Sex: Female
  Weight: 80 kg

DRUGS (1)
  1. METOCLOPRAMIDE TABLET 10MG / BRAND NAME NOT SPECIFIED [Suspect]
     Active Substance: METOCLOPRAMIDE
     Indication: MORNING SICKNESS
     Dosage: 10 MILLIGRAM DAILY;
     Route: 065
     Dates: start: 20210716, end: 202107

REACTIONS (2)
  - Nausea [Not Recovered/Not Resolved]
  - Syncope [Not Recovered/Not Resolved]
